FAERS Safety Report 7719434-2 (Version None)
Quarter: 2011Q3

REPORT INFORMATION
  Report Type: 
  Country: None (occurrence: None)
  Receive Date: 20110830
  Receipt Date: 20110819
  Transmission Date: 20111222
  Serious: Yes (Other)
  Sender: FDA-Public Use
  Company Number: PHHY2011BE75913

PATIENT
  Age: 8 Month
  Sex: Female

DRUGS (1)
  1. METHERGINE [Suspect]
     Dosage: 2.5 ML, UNK
     Route: 048
     Dates: start: 20090101

REACTIONS (4)
  - VOMITING [None]
  - WRONG DRUG ADMINISTERED [None]
  - DEPRESSED LEVEL OF CONSCIOUSNESS [None]
  - SOMNOLENCE [None]
